FAERS Safety Report 8961081 (Version 1)
Quarter: 2012Q4

REPORT INFORMATION
  Report Type: 
  Country: US (occurrence: US)
  Receive Date: 20121212
  Receipt Date: 20121212
  Transmission Date: 20130627
  Serious: No
  Sender: FDA-Public Use
  Company Number: US-ASTRAZENECA-2012SE91165

PATIENT
  Sex: Female

DRUGS (3)
  1. SYMBICORT [Suspect]
     Dosage: UNKNOWN
     Route: 055
     Dates: start: 2012
  2. PROAIR [Concomitant]
  3. ATROVENT [Concomitant]

REACTIONS (3)
  - Stomatitis [Unknown]
  - Back pain [Unknown]
  - Drug ineffective [Unknown]
